FAERS Safety Report 23004046 (Version 4)
Quarter: 2024Q1

REPORT INFORMATION
  Report Type: Spontaneous
  Country: DE (occurrence: DE)
  Receive Date: 20230928
  Receipt Date: 20240330
  Transmission Date: 20240409
  Serious: Yes (Hospitalization)
  Sender: FDA-Public Use
  Company Number: DE-002147023-NVSC2021DE253015

PATIENT
  Sex: Female
  Weight: 49 kg

DRUGS (4)
  1. FULVESTRANT [Suspect]
     Active Substance: FULVESTRANT
     Indication: Hormone receptor positive HER2 negative breast cancer
     Dosage: 500 MG, Q2W, (DAILY DOSE)
     Route: 030
     Dates: start: 20190614, end: 20210910
  2. KISQALI [Suspect]
     Active Substance: RIBOCICLIB
     Dosage: 400 MG, QD, (DAILY DOSE)
     Route: 048
     Dates: start: 20190625, end: 20210914
  3. KISQALI [Suspect]
     Active Substance: RIBOCICLIB
     Dosage: 500 MG, Q2W, (DAILY DOSE)
     Route: 030
     Dates: start: 20190614
  4. KISQALI [Suspect]
     Active Substance: RIBOCICLIB
     Indication: Hormone receptor positive HER2 negative breast cancer
     Dosage: 600 MG, QD, (DAILY DOSE) REGIMEN 21 DAYS INTAKE, 7 DAYS PAUSE
     Route: 048
     Dates: start: 20190614, end: 20190624

REACTIONS (11)
  - Vomiting [Recovered/Resolved]
  - Spinal pain [Recovered/Resolved]
  - Nausea [Recovered/Resolved]
  - Nausea [Recovered/Resolved]
  - Spinal pain [Unknown]
  - Metastases to bone [Unknown]
  - General physical health deterioration [Recovered/Resolved]
  - Decreased appetite [Recovered/Resolved]
  - Dysphagia [Recovered/Resolved]
  - Pyrexia [Recovered/Resolved]
  - Movement disorder [Recovered/Resolved]

NARRATIVE: CASE EVENT DATE: 20210419
